FAERS Safety Report 9914572 (Version 6)
Quarter: 2020Q4

REPORT INFORMATION
  Report Type: Spontaneous
  Country: US (occurrence: US)
  Receive Date: 20140220
  Receipt Date: 20201016
  Transmission Date: 20210114
  Serious: Yes (Other)
  Sender: FDA-Public Use
  Company Number: US-PFIZER INC-2014049307

PATIENT
  Age: 69 Year
  Sex: Female
  Weight: 93 kg

DRUGS (11)
  1. LYRICA [Suspect]
     Active Substance: PREGABALIN
     Indication: TYPE V HYPERLIPIDAEMIA
  2. LYRICA [Suspect]
     Active Substance: PREGABALIN
     Indication: VITAMIN D DEFICIENCY
  3. LYRICA [Suspect]
     Active Substance: PREGABALIN
     Indication: CROHN^S DISEASE
  4. LYRICA [Suspect]
     Active Substance: PREGABALIN
     Indication: GASTROOESOPHAGEAL REFLUX DISEASE
  5. LYRICA [Suspect]
     Active Substance: PREGABALIN
     Indication: IRON DEFICIENCY ANAEMIA
  6. LYRICA [Suspect]
     Active Substance: PREGABALIN
     Indication: OBESITY
  7. LYRICA [Suspect]
     Active Substance: PREGABALIN
     Indication: NEUROPATHY PERIPHERAL
     Dosage: 75 MG, THREE TIMES A DAY
  8. LYRICA [Suspect]
     Active Substance: PREGABALIN
     Indication: HYPOTHYROIDISM
  9. LYRICA [Suspect]
     Active Substance: PREGABALIN
     Indication: MONONEURITIS
     Dosage: 75 MG, TWICE A DAY
     Route: 048
     Dates: start: 20181101
  10. LYRICA [Suspect]
     Active Substance: PREGABALIN
     Indication: RHEUMATOID ARTHRITIS
  11. CARVEDILOL. [Concomitant]
     Active Substance: CARVEDILOL
     Indication: BLOOD PRESSURE ABNORMAL
     Dosage: 25 MG, TWO TIMES A DAY

REACTIONS (1)
  - Arthropathy [Unknown]

NARRATIVE: CASE EVENT DATE: 201310
